FAERS Safety Report 9018158 (Version 1)
Quarter: 2013Q1

REPORT INFORMATION
  Report Type: Spontaneous
  Country: CN (occurrence: CN)
  Receive Date: 20130117
  Receipt Date: 20130117
  Transmission Date: 20140127
  Serious: Yes (Hospitalization)
  Sender: FDA-Public Use
  Company Number: PHHY2012CN123674

PATIENT
  Age: 64 Year
  Sex: Male
  Weight: 81 kg

DRUGS (3)
  1. TEGRETOL [Suspect]
     Indication: EPILEPSY
     Dosage: 0.2 G, TID
     Route: 048
     Dates: start: 20090703
  2. TEGRETOL [Suspect]
     Dosage: 0.2 G, BID
     Dates: start: 20110811
  3. DEPAKIN [Suspect]
     Indication: EPILEPSY

REACTIONS (5)
  - Pyrexia [Unknown]
  - Cough [Unknown]
  - Productive cough [Unknown]
  - White blood cell count decreased [Recovered/Resolved]
  - Platelet count decreased [Recovered/Resolved]
